FAERS Safety Report 22177806 (Version 1)
Quarter: 2023Q2

REPORT INFORMATION
  Report Type: Spontaneous
  Country: FR (occurrence: FR)
  Receive Date: 20230405
  Receipt Date: 20230405
  Transmission Date: 20230722
  Serious: Yes (Hospitalization, Other)
  Sender: FDA-Public Use
  Company Number: FR-AMGEN-FRASP2023054704

PATIENT
  Age: 29 Year
  Sex: Female

DRUGS (2)
  1. ROMIPLOSTIM [Suspect]
     Active Substance: ROMIPLOSTIM
     Indication: Immune thrombocytopenia
     Dosage: 6 MICROGRAM/KG
     Route: 058
  2. RITUXIMAB [Concomitant]
     Active Substance: RITUXIMAB
     Indication: Immune thrombocytopenia
     Dosage: 1 GRAM
     Route: 065

REACTIONS (3)
  - Subdural haematoma [Recovering/Resolving]
  - Brain herniation [Recovering/Resolving]
  - Immune thrombocytopenia [Recovering/Resolving]
